FAERS Safety Report 6803580-1 (Version None)
Quarter: 2010Q2

REPORT INFORMATION
  Report Type: 
  Country: None (occurrence: None)
  Receive Date: 20100628
  Receipt Date: 20100618
  Transmission Date: 20101027
  Serious: No
  Sender: FDA-Public Use
  Company Number: US-JNJFOC-20100606328

PATIENT
  Sex: Female
  Weight: 90.72 kg

DRUGS (10)
  1. SANDOZ FENTANYL TRANSDERMAL SYSTEM [Suspect]
     Indication: PAIN
     Dosage: NDC# 0781-7241-55
     Route: 062
  2. CYMBALTA [Concomitant]
     Indication: DEPRESSION
     Route: 048
  3. THEOPHYLLINE [Concomitant]
     Indication: ASTHMA
     Route: 048
  4. HYDROCHLOROTHIAZIDE [Concomitant]
     Indication: BLOOD PRESSURE
     Dosage: 20/12.5MG
     Route: 048
  5. NICORET [Concomitant]
     Indication: SMOKING CESSATION THERAPY
     Dosage: 4MG/8 EVERY DAY/ORAL
     Route: 048
  6. SULINDAC [Concomitant]
     Indication: PAIN
     Route: 048
  7. BACLOFEN [Concomitant]
     Indication: PAIN
     Route: 048
  8. BUSPAR [Concomitant]
     Indication: AGORAPHOBIA
     Route: 048
  9. OXYBUTYNIN CHLORIDE [Concomitant]
     Indication: DYSURIA
     Route: 048
  10. ZOLPIDEM [Concomitant]
     Indication: SLEEP DISORDER
     Route: 048

REACTIONS (3)
  - APPLICATION SITE PRURITUS [None]
  - PRODUCT QUALITY ISSUE [None]
  - WRONG TECHNIQUE IN DRUG USAGE PROCESS [None]
